FAERS Safety Report 6607418-7 (Version None)
Quarter: 2010Q1

REPORT INFORMATION
  Report Type: 
  Country: None (occurrence: None)
  Receive Date: 20100301
  Receipt Date: 20100219
  Transmission Date: 20100710
  Serious: Yes (Hospitalization)
  Sender: FDA-Public Use
  Company Number: FR-ELI_LILLY_AND_COMPANY-FR201002006293

PATIENT
  Sex: Male

DRUGS (5)
  1. GEMCITABINE HCL [Suspect]
     Indication: BILE DUCT CANCER
     Dosage: 1000 MG/M2 EVERY 2 WEEKS
     Route: 042
     Dates: start: 20080730, end: 20080814
  2. GEMCITABINE HCL [Suspect]
     Dosage: 80% OF FIRST DOSE.
     Dates: start: 20080828, end: 20080828
  3. CETUXIMAB [Suspect]
     Indication: BILE DUCT CANCER
     Dosage: 500 MG/M2 EVERY 2 WEEKS
     Route: 042
     Dates: start: 20080730
  4. OXALIPLATIN [Suspect]
     Indication: BILE DUCT CANCER
     Dosage: 100 MG/M2 EVERY 2 WEEKS
     Route: 042
     Dates: start: 20080730, end: 20080813
  5. OXALIPLATIN [Suspect]
     Dosage: 80% OF FIRST DOSE.
     Dates: start: 20080827, end: 20080827

REACTIONS (5)
  - ASCITES [None]
  - DEVICE RELATED INFECTION [None]
  - GENERAL PHYSICAL HEALTH DETERIORATION [None]
  - MALNUTRITION [None]
  - RENAL FAILURE ACUTE [None]
